FAERS Safety Report 17802561 (Version 1)
Quarter: 2020Q2

REPORT INFORMATION
  Report Type: Spontaneous
  Country: US (occurrence: US)
  Receive Date: 20200519
  Receipt Date: 20200519
  Transmission Date: 20200714
  Serious: No
  Sender: FDA-Public Use
  Company Number: US-NOVEN PHARMACEUTICALS, INC.-US2020000229

PATIENT

DRUGS (6)
  1. DAYTRANA [Suspect]
     Active Substance: METHYLPHENIDATE
     Indication: ATTENTION DEFICIT HYPERACTIVITY DISORDER
     Dosage: 30 MG, UNKNOWN
     Route: 062
  2. CANNABIDIOL [Concomitant]
     Active Substance: CANNABIDIOL
     Indication: AUTISM SPECTRUM DISORDER
     Dosage: 15 MG, BID
  3. VITAMINS NOS [Concomitant]
     Active Substance: VITAMINS
     Indication: MENTAL DISORDER
     Dosage: UNK
  4. DAYTRANA [Suspect]
     Active Substance: METHYLPHENIDATE
     Dosage: 30 MG, UNKNOWN
     Route: 062
  5. DEPLIN [Concomitant]
     Active Substance: LEVOMEFOLATE CALCIUM
     Indication: FOLATE DEFICIENCY
     Dosage: 15 MG, QD
  6. DAYTRANA [Suspect]
     Active Substance: METHYLPHENIDATE
     Dosage: 30 MG, UNKNOWN
     Route: 062

REACTIONS (3)
  - No adverse event [Unknown]
  - Therapeutic response unexpected [Not Recovered/Not Resolved]
  - Off label use [Not Recovered/Not Resolved]
